FAERS Safety Report 18498413 (Version 3)
Quarter: 2021Q1

REPORT INFORMATION
  Report Type: Spontaneous
  Country: JP (occurrence: JP)
  Receive Date: 20201113
  Receipt Date: 20210225
  Transmission Date: 20210419
  Serious: Yes (Death, Other)
  Sender: FDA-Public Use
  Company Number: JP-BRISTOL-MYERS SQUIBB COMPANY-BMS-2019-126839

PATIENT
  Age: 64 Year
  Sex: Female
  Weight: 46 kg

DRUGS (1)
  1. OPDIVO [Suspect]
     Active Substance: NIVOLUMAB
     Indication: MALIGNANT MELANOMA
     Dosage: 240 MILLIGRAM
     Route: 041
     Dates: start: 20190226, end: 20190226

REACTIONS (1)
  - Death [Fatal]
